FAERS Safety Report 7829053-5 (Version None)
Quarter: 2011Q4

REPORT INFORMATION
  Report Type: 
  Country: None (occurrence: None)
  Receive Date: 20111020
  Receipt Date: 20111014
  Transmission Date: 20120403
  Serious: Yes (Hospitalization, Other)
  Sender: FDA-Public Use
  Company Number: US-TEVA-305248USA

PATIENT
  Sex: Female
  Weight: 65.83 kg

DRUGS (2)
  1. UNSPECIFIED PRODUCT [Suspect]
  2. PARAGARD T 380A [Suspect]
     Indication: CONTRACEPTION
     Route: 015
     Dates: start: 20090101

REACTIONS (12)
  - GALLBLADDER DISORDER [None]
  - MYALGIA [None]
  - PYREXIA [None]
  - LACTIC ACIDOSIS [None]
  - WHITE BLOOD CELL COUNT INCREASED [None]
  - HEADACHE [None]
  - OVERDOSE [None]
  - LABORATORY TEST ABNORMAL [None]
  - RESPIRATORY ARREST [None]
  - LOSS OF CONSCIOUSNESS [None]
  - PAIN [None]
  - ABDOMINAL PAIN [None]
